FAERS Safety Report 5752482-0 (Version None)
Quarter: 2008Q2

REPORT INFORMATION
  Report Type: 
  Country: None (occurrence: None)
  Receive Date: 20080529
  Receipt Date: 20080519
  Transmission Date: 20081010
  Serious: Yes (Other)
  Sender: FDA-Public Use
  Company Number: US-ALLERGAN-0806010US

PATIENT
  Sex: Female

DRUGS (1)
  1. ZYMAR [Suspect]
     Indication: INFECTION PROPHYLAXIS
     Dosage: 3 GTT, SINGLE
     Route: 047
     Dates: start: 20080518

REACTIONS (3)
  - CHEMICAL BURNS OF EYE [None]
  - EYE DISORDER [None]
  - EYE IRRITATION [None]
